FAERS Safety Report 8842886 (Version 3)
Quarter: 2013Q1

REPORT INFORMATION
  Report Type: Spontaneous
  Country: US (occurrence: US)
  Receive Date: 20121016
  Receipt Date: 20130120
  Transmission Date: 20140127
  Serious: No
  Sender: FDA-Public Use
  Company Number: US-ASTRAZENECA-2012SE77262

PATIENT
  Age: 51 Year
  Sex: Female

DRUGS (12)
  1. TENORMIN [Suspect]
     Route: 048
     Dates: start: 20110629
  2. NEXIUM [Suspect]
     Route: 048
     Dates: start: 20120925
  3. IBUPROFEN [Concomitant]
     Route: 048
  4. PLAVIX [Concomitant]
  5. VALIUM [Concomitant]
  6. FISH OIL [Concomitant]
  7. TIZANIDINE HCL [Concomitant]
  8. VICODIN [Concomitant]
  9. NAPROXEN [Concomitant]
  10. LIPITOR [Concomitant]
  11. TRICOR [Concomitant]
  12. ASPIRIN [Concomitant]

REACTIONS (9)
  - Essential hypertension [Recovered/Resolved]
  - Hyperlipidaemia [Recovered/Resolved]
  - Osteoarthritis [Unknown]
  - Arthralgia [Not Recovered/Not Resolved]
  - Coronary artery disease [Not Recovered/Not Resolved]
  - Ligament sprain [Unknown]
  - Pain [Unknown]
  - Depression [Recovered/Resolved]
  - Abdominal pain upper [Not Recovered/Not Resolved]
